FAERS Safety Report 23735912 (Version 1)
Quarter: 2024Q2

REPORT INFORMATION
  Report Type: Report from Study
  Country: GR (occurrence: GR)
  Receive Date: 20240412
  Receipt Date: 20240412
  Transmission Date: 20240716
  Serious: Yes (Death)
  Sender: FDA-Public Use
  Company Number: GR-HELSINN-2021GR023788

PATIENT
  Age: 84 Year
  Sex: Male

DRUGS (1)
  1. MECHLORETHAMINE HYDROCHLORIDE [Suspect]
     Active Substance: MECHLORETHAMINE HYDROCHLORIDE
     Indication: Cutaneous T-cell lymphoma
     Dosage: UNK, QOD
     Route: 003
     Dates: start: 2019, end: 20211015

REACTIONS (4)
  - Death [Fatal]
  - Expired product administered [Recovered/Resolved]
  - Off label use [Not Recovered/Not Resolved]
  - Therapy interrupted [Unknown]

NARRATIVE: CASE EVENT DATE: 20210924
